FAERS Safety Report 6372814-2 (Version None)
Quarter: 2009Q3

REPORT INFORMATION
  Report Type: 
  Country: None (occurrence: None)
  Receive Date: 20090924
  Receipt Date: 20081103
  Transmission Date: 20100115
  Serious: No
  Sender: FDA-Public Use
  Company Number: US-ASTRAZENECA-2008UW24600

PATIENT
  Sex: Female

DRUGS (2)
  1. SEROQUEL XR [Suspect]
     Indication: BIPOLAR DISORDER
     Route: 048
     Dates: end: 20080901
  2. SEROQUEL XR [Suspect]
     Route: 048
     Dates: start: 20080901

REACTIONS (3)
  - HUNGER [None]
  - INSOMNIA [None]
  - WEIGHT INCREASED [None]
